FAERS Safety Report 11873088 (Version 2)
Quarter: 2016Q1

REPORT INFORMATION
  Report Type: Spontaneous
  Country: US (occurrence: US)
  Receive Date: 20151228
  Receipt Date: 20160222
  Transmission Date: 20160526
  Serious: Yes (Hospitalization)
  Sender: FDA-Public Use
  Company Number: US-SMITH AND NEPHEW, INC-2015SMT00665

PATIENT
  Age: 54 Year
  Sex: Male
  Weight: 133.79 kg

DRUGS (15)
  1. FORFIVO XL [Concomitant]
     Active Substance: BUPROPION HYDROCHLORIDE
     Dosage: 450 MG, 1X/DAY
     Route: 048
  2. HUMALOG [Concomitant]
     Active Substance: INSULIN LISPRO
     Dosage: 16-24 U, 1X/DAY
     Route: 058
  3. LISINOPRIL-HYDROCHLOROTHIAZIDE [Concomitant]
     Active Substance: HYDROCHLOROTHIAZIDE\LISINOPRIL
     Dosage: 1 TABLETS, 1X/DAY
     Route: 048
  4. LOVASTATIN. [Concomitant]
     Active Substance: LOVASTATIN
     Dosage: 40 MG, 1X/DAY
     Route: 048
  5. METFORMIN [Concomitant]
     Active Substance: METFORMIN HYDROCHLORIDE
     Dosage: 1000 MG, 2X/DAY
     Route: 048
  6. OMEPRAZOLE. [Concomitant]
     Active Substance: OMEPRAZOLE
     Dosage: 20 MG, 1X/DAY
     Route: 048
  7. FENOFIBRATE. [Concomitant]
     Active Substance: FENOFIBRATE
     Dosage: 145 MG, 1X/DAY
     Route: 048
  8. ASPIRIN. [Concomitant]
     Active Substance: ASPIRIN
     Dosage: 81 MG, 1X/DAY
     Route: 048
  9. REGRANEX [Suspect]
     Active Substance: BECAPLERMIN
     Indication: DIABETIC FOOT
     Dosage: 12 HOURS ON
     Route: 061
     Dates: start: 201510, end: 20151204
  10. DULOXETINE. [Concomitant]
     Active Substance: DULOXETINE
     Dosage: 90 MG, 1X/DAY
     Route: 048
  11. BYSTOLIC [Concomitant]
     Active Substance: NEBIVOLOL HYDROCHLORIDE
     Dosage: 10 MG, 1X/DAY
     Route: 048
  12. HUMALOG [Concomitant]
     Active Substance: INSULIN LISPRO
     Dosage: 10-16 U, 1X/DAY
     Route: 058
  13. HUMALOG [Concomitant]
     Active Substance: INSULIN LISPRO
     Dosage: 10 U, 1X/DAY
     Route: 058
  14. LEVEMIR [Concomitant]
     Active Substance: INSULIN DETEMIR
     Dosage: 50 U, 1X/DAY
  15. PIOGLITAZONE. [Concomitant]
     Active Substance: PIOGLITAZONE
     Dosage: 30 MG, 1X/DAY
     Route: 048

REACTIONS (6)
  - Depression [Unknown]
  - Wound necrosis [Recovering/Resolving]
  - Diabetic foot infection [Recovering/Resolving]
  - Wound complication [Unknown]
  - Hyperkeratosis [Recovered/Resolved]
  - Gastrooesophageal reflux disease [Unknown]

NARRATIVE: CASE EVENT DATE: 201511
